FAERS Safety Report 9437612 (Version 3)
Quarter: 2013Q4

REPORT INFORMATION
  Report Type: Spontaneous
  Country: US (occurrence: US)
  Receive Date: 20130802
  Receipt Date: 20131010
  Transmission Date: 20140711
  Serious: Yes (Other)
  Sender: FDA-Public Use
  Company Number: US-PFIZER INC-2013224836

PATIENT
  Sex: Male

DRUGS (1)
  1. LIPITOR [Suspect]
     Dosage: UNK, DAILY
     Dates: start: 201304

REACTIONS (3)
  - Brain oedema [Unknown]
  - Cerebrovascular accident [Unknown]
  - Arterial occlusive disease [Unknown]
